FAERS Safety Report 7490374-X (Version None)
Quarter: 2011Q2

REPORT INFORMATION
  Report Type: 
  Country: None (occurrence: None)
  Receive Date: 20110519
  Receipt Date: 20110505
  Transmission Date: 20111010
  Serious: Yes (Hospitalization, Disabling, Other)
  Sender: FDA-Public Use
  Company Number: BR-BAYER-200924042LA

PATIENT
  Age: 65 Year
  Sex: Female

DRUGS (7)
  1. BETAFERON [Suspect]
     Indication: MULTIPLE SCLEROSIS
     Dosage: BETAJECT
     Route: 058
     Dates: start: 20070301, end: 20091101
  2. ATENOLOL [Concomitant]
     Indication: MYOCARDIAL INFARCTION
     Dosage: 2 TABLETS DAILY
     Route: 048
     Dates: start: 20090201
  3. BETAFERON [Suspect]
     Dosage: 8 MIU, QOD, BETAJECT
     Route: 058
     Dates: start: 20100101
  4. CAPTOPRIL [Concomitant]
     Indication: MYOCARDIAL INFARCTION
     Dosage: 3 TABLETS DAILY
     Route: 048
     Dates: start: 20090201
  5. GLIMEPIRIDE [Concomitant]
     Indication: DIABETES MELLITUS
     Dosage: 2 TABLET DAILY
     Route: 048
     Dates: start: 19960101
  6. LIPITOR [Concomitant]
     Indication: MYOCARDIAL INFARCTION
     Dosage: 1 DF, QD
     Route: 048
     Dates: start: 20090201
  7. PLAVIX [Concomitant]
     Indication: MYOCARDIAL INFARCTION
     Dosage: 1 DF, QD
     Route: 048
     Dates: start: 20090201

REACTIONS (8)
  - INFLUENZA [None]
  - MYOCARDIAL INFARCTION [None]
  - SYNCOPE [None]
  - PYREXIA [None]
  - MUSCULOSKELETAL STIFFNESS [None]
  - WALKING AID USER [None]
  - WHEELCHAIR USER [None]
  - GAIT DISTURBANCE [None]
